FAERS Safety Report 10432354 (Version 3)
Quarter: 2015Q1

REPORT INFORMATION
  Report Type: Spontaneous
  Country: FR (occurrence: FR)
  Receive Date: 20140905
  Receipt Date: 20150102
  Transmission Date: 20150720
  Serious: No
  Sender: FDA-Public Use
  Company Number: FR-009507513-1409FRA000218

PATIENT
  Sex: Female
  Weight: 73 kg

DRUGS (1)
  1. NEXPLANON [Suspect]
     Active Substance: ETONOGESTREL
     Dosage: UNK, LEFT ARM
     Route: 059
     Dates: start: 20130610

REACTIONS (4)
  - Drug dose omission [Unknown]
  - Medical device complication [Unknown]
  - Adverse event [Unknown]
  - Unintended pregnancy [Recovered/Resolved]
